FAERS Safety Report 13589132 (Version 1)
Quarter: 2017Q2

REPORT INFORMATION
  Report Type: Spontaneous
  Country: US (occurrence: US)
  Receive Date: 20170526
  Receipt Date: 20170526
  Transmission Date: 20170830
  Serious: Yes (Other)
  Sender: FDA-Public Use
  Company Number: None

PATIENT
  Age: 74 Year
  Sex: Male
  Weight: 96.75 kg

DRUGS (7)
  1. NORVAC [Concomitant]
     Active Substance: AMLODIPINE BESYLATE
  2. ASPRIN [Concomitant]
     Active Substance: ASPIRIN
  3. PRALUENT [Suspect]
     Active Substance: ALIROCUMAB
     Indication: TYPE IIA HYPERLIPIDAEMIA
     Dosage: ?          QUANTITY:2 INJECTION(S);OTHER FREQUENCY:1 EVERY 2 WEEKS;?
     Route: 030
  4. AVAPRO [Concomitant]
     Active Substance: IRBESARTAN
  5. VITAMIN D3 [Concomitant]
     Active Substance: CHOLECALCIFEROL
  6. ALDACTAZIDE [Concomitant]
     Active Substance: HYDROCHLOROTHIAZIDE\SPIRONOLACTONE
  7. PRAVACOL [Concomitant]
     Active Substance: PRAVASTATIN SODIUM

REACTIONS (5)
  - Visual impairment [None]
  - Cataract [None]
  - Vision blurred [None]
  - Therapy change [None]
  - Influenza [None]

NARRATIVE: CASE EVENT DATE: 20170519
